FAERS Safety Report 7809114-7 (Version None)
Quarter: 2011Q4

REPORT INFORMATION
  Report Type: 
  Country: None (occurrence: None)
  Receive Date: 20111012
  Receipt Date: 20110928
  Transmission Date: 20120403
  Serious: Yes (Hospitalization)
  Sender: FDA-Public Use
  Company Number: FR-AMGEN-FRASP2011051374

PATIENT
  Age: 64 Year
  Sex: Female
  Weight: 70 kg

DRUGS (10)
  1. ENBREL [Suspect]
     Dosage: 50 MG, EVERY 7 WEEKS
     Route: 058
     Dates: start: 20100501, end: 20110101
  2. GINKOR FORT [Concomitant]
     Dosage: UNK UNK, UNK
     Route: 048
  3. ENBREL [Suspect]
     Dosage: 50 MG, EVERY 4 WEEKS
     Route: 058
     Dates: start: 20110101, end: 20110501
  4. ENBREL [Suspect]
     Dosage: 50 MG, EVERY 2 WEEKS
     Route: 058
     Dates: start: 20081101, end: 20091101
  5. ENBREL [Suspect]
     Dosage: 50 MG, EVERY 3 WEEKS
     Route: 058
     Dates: start: 20091101, end: 20100501
  6. SPECIAFOLDINE [Concomitant]
     Dosage: UNK UNK, UNK
  7. ENBREL [Suspect]
     Indication: RHEUMATOID ARTHRITIS
     Dosage: 50 MG, WEEKLY
     Route: 058
     Dates: start: 20070101, end: 20081101
  8. ENBREL [Suspect]
     Dosage: 50 MG, WEEKLY
     Route: 058
     Dates: start: 20110526
  9. METHOTREXATE SODIUM [Suspect]
     Indication: RHEUMATOID ARTHRITIS
     Dosage: 15 MG, 1X/WEEK
     Route: 058
     Dates: start: 20110526, end: 20110630
  10. METHOTREXATE [Concomitant]
     Indication: RHEUMATOID ARTHRITIS
     Dosage: UNK
     Dates: start: 20070101, end: 20110526

REACTIONS (3)
  - MYALGIA [None]
  - RHABDOMYOLYSIS [None]
  - OEDEMA PERIPHERAL [None]
